FAERS Safety Report 9698992 (Version 1)
Quarter: 2013Q4

REPORT INFORMATION
  Report Type: Spontaneous
  Country: US (occurrence: None)
  Receive Date: 20131118
  Receipt Date: 20131118
  Transmission Date: 20140711
  Serious: Yes (Other)
  Sender: FDA-Public Use
  Company Number: 2013US002797

PATIENT
  Sex: Male

DRUGS (6)
  1. ICLUSIG [Suspect]
     Indication: PRODUCT USED FOR UNKNOWN INDICATION
     Route: 048
  2. LIPITOR (ATORVASTATIN CALCIUM) [Concomitant]
  3. ASPIRIN (ACETYLSALICYLIC ACID) [Concomitant]
  4. NORVASC (AMLODIPINE BESILATE) [Concomitant]
  5. ALEVE (NAPROXEN SODIUM) [Concomitant]
  6. ACYCLOVIR (ACYCLOVIR) [Concomitant]

REACTIONS (1)
  - Myocardial infarction [None]
